FAERS Safety Report 6535521-9 (Version None)
Quarter: 2010Q1

REPORT INFORMATION
  Report Type: 
  Country: None (occurrence: None)
  Receive Date: 20100113
  Receipt Date: 20100108
  Transmission Date: 20100710
  Serious: Yes (Hospitalization)
  Sender: FDA-Public Use
  Company Number: US-BRISTOL-MYERS SQUIBB COMPANY-14928071

PATIENT
  Sex: Male

DRUGS (5)
  1. REYATAZ [Suspect]
  2. LISINOPRIL [Concomitant]
  3. NORVASC [Concomitant]
  4. ISENTRESS [Concomitant]
  5. SELZENTRY [Concomitant]

REACTIONS (2)
  - HYDRONEPHROSIS [None]
  - NEPHROLITHIASIS [None]
